FAERS Safety Report 8498819-3 (Version None)
Quarter: 2012Q3

REPORT INFORMATION
  Report Type: 
  Country: None (occurrence: None)
  Receive Date: 20120710
  Receipt Date: 20120703
  Transmission Date: 20120928
  Serious: Yes (Disabling)
  Sender: FDA-Public Use
  Company Number: US-ALVOGEN-2012AL000052

PATIENT
  Age: 23 Year
  Sex: Male

DRUGS (5)
  1. RIOMET /00082701/ [Concomitant]
     Dates: start: 20080101
  2. MACROBID [Suspect]
     Indication: URINARY TRACT INFECTION
     Route: 048
     Dates: start: 20120410, end: 20120413
  3. DEPAKOTE [Concomitant]
     Indication: PRODUCT USED FOR UNKNOWN INDICATION
  4. LISINOPRIL [Concomitant]
     Indication: PRODUCT USED FOR UNKNOWN INDICATION
  5. KEPPRA [Concomitant]
     Indication: PRODUCT USED FOR UNKNOWN INDICATION

REACTIONS (4)
  - NEUROPATHY PERIPHERAL [None]
  - HYPOAESTHESIA [None]
  - ABASIA [None]
  - PARAESTHESIA [None]
